FAERS Safety Report 8242439-2 (Version None)
Quarter: 2012Q1

REPORT INFORMATION
  Report Type: 
  Country: None (occurrence: None)
  Receive Date: 20120329
  Receipt Date: 20120320
  Transmission Date: 20120608
  Serious: Yes (Disabling)
  Sender: FDA-Public Use
  Company Number: GB-JNJFOC-20120311531

PATIENT
  Age: 42 Year
  Sex: Female

DRUGS (1)
  1. XARELTO [Suspect]
     Indication: THROMBOSIS PROPHYLAXIS
     Route: 048
     Dates: start: 20120104, end: 20120301

REACTIONS (4)
  - VISUAL IMPAIRMENT [None]
  - DIPLOPIA [None]
  - PHOTOPHOBIA [None]
  - MIGRAINE [None]
